FAERS Safety Report 9619731 (Version 2)
Quarter: 2013Q4

REPORT INFORMATION
  Report Type: Spontaneous
  Country: IT (occurrence: IT)
  Receive Date: 20131014
  Receipt Date: 20131219
  Transmission Date: 20140711
  Serious: Yes (Other)
  Sender: FDA-Public Use
  Company Number: IT-BAXTER-2013BAX039183

PATIENT
  Age: 1 Month
  Sex: Female

DRUGS (8)
  1. BREVIBLOC [Suspect]
     Indication: SUPRAVENTRICULAR TACHYCARDIA
     Dosage: 680 GAMMA/MIN
     Route: 042
     Dates: start: 20130424, end: 20130426
  2. BREVIBLOC [Suspect]
     Indication: OFF LABEL USE
  3. LANOXIN [Suspect]
     Indication: SUPRAVENTRICULAR TACHYCARDIA
     Route: 042
     Dates: start: 20130424, end: 20130426
  4. BETAMETHASONE [Suspect]
     Route: 065
  5. PROPRANOLOL [Concomitant]
     Indication: SUPRAVENTRICULAR TACHYCARDIA
     Route: 048
     Dates: start: 20130425, end: 20130427
  6. ADISTEROLO [Concomitant]
     Indication: PRODUCT USED FOR UNKNOWN INDICATION
     Route: 048
     Dates: start: 20130425, end: 20130427
  7. MYLICON [Concomitant]
     Indication: PRODUCT USED FOR UNKNOWN INDICATION
     Route: 048
     Dates: start: 20130425, end: 20130427
  8. PARACETAMOLO [Concomitant]
     Indication: PRODUCT USED FOR UNKNOWN INDICATION
     Route: 048

REACTIONS (5)
  - Blister [Recovered/Resolved]
  - Infusion site extravasation [Recovered/Resolved]
  - Skin ulcer [Recovered/Resolved]
  - Infusion site erythema [Recovered/Resolved]
  - Infusion site oedema [Recovered/Resolved]
